FAERS Safety Report 20378406 (Version 1)
Quarter: 2022Q1

REPORT INFORMATION
  Report Type: Spontaneous
  Country: FR (occurrence: FR)
  Receive Date: 20220126
  Receipt Date: 20220126
  Transmission Date: 20220423
  Serious: Yes (Hospitalization, Other)
  Sender: FDA-Public Use
  Company Number: None

PATIENT
  Age: 13 Year
  Sex: Female
  Weight: 39 kg

DRUGS (16)
  1. CYCLOSPORINE [Interacting]
     Active Substance: CYCLOSPORINE
     Indication: Prophylaxis against transplant rejection
     Dosage: 60 MG, QD (30 MG, 2X/DAY) (SYRUP)
     Route: 048
     Dates: start: 201912, end: 20200514
  2. CYCLOSPORINE [Interacting]
     Active Substance: CYCLOSPORINE
     Dosage: 20 MG, QD (10 MG, 2X/DAY)
     Route: 048
     Dates: start: 20200611
  3. CYCLOSPORINE [Interacting]
     Active Substance: CYCLOSPORINE
     Dosage: 40 MG, QD (20 MG, 2X/DAY)
     Route: 048
  4. XALKORI [Interacting]
     Active Substance: CRIZOTINIB
     Indication: Lymphoma
     Dosage: 320 MG/M2, QD (160MG/M2 (25 MG/ML), 2X/DAY)
     Route: 048
     Dates: start: 20191218
  5. XALKORI [Interacting]
     Active Substance: CRIZOTINIB
     Dosage: 400 MG, QD (200 MG, 2X/DAY (1 CAPSULE IN THE MORNING AND IN THE)
     Route: 048
     Dates: start: 20200515, end: 20200608
  6. XALKORI [Interacting]
     Active Substance: CRIZOTINIB
     Dosage: 200 MG, QD (100 MG, 2X/DAY)
     Route: 048
     Dates: start: 20200803
  7. XALKORI [Interacting]
     Active Substance: CRIZOTINIB
     Dosage: 160 MG/M2, QD (80 MG/M2, 2X/DAY)
     Route: 048
     Dates: end: 20210421
  8. ROXITHROMYCIN [Concomitant]
     Active Substance: ROXITHROMYCIN
     Indication: Prophylaxis
     Dosage: 200 MG, BID (100 MG, 2X/DAY)
     Route: 048
     Dates: start: 201912
  9. HYDROCORTISONE [Concomitant]
     Active Substance: HYDROCORTISONE
     Indication: Product used for unknown indication
     Dosage: 10 MG-5 MG, 2X/DAY
     Route: 048
     Dates: start: 20210522
  10. POSACONAZOLE [Concomitant]
     Active Substance: POSACONAZOLE
     Indication: Antifungal prophylaxis
     Dosage: 600 MG, QD (200 MG, 3X/DAY)
     Route: 048
     Dates: start: 20200317
  11. BACTRIM [Concomitant]
     Active Substance: SULFAMETHOXAZOLE\TRIMETHOPRIM
     Indication: Prophylaxis
     Dosage: 800 MG (800 MG, 3X/WEEK)
     Route: 048
     Dates: start: 201908, end: 20200702
  12. VFEND [Concomitant]
     Active Substance: VORICONAZOLE
     Indication: Prophylaxis
     Dosage: 480 MG, QD (240 MG, 2X/DAY)
     Route: 048
     Dates: start: 20200317
  13. SOLUPRED [Concomitant]
     Indication: Graft versus host disease
     Dosage: 10 MG, QD (10 MG, 1X/DAY)
     Route: 048
     Dates: start: 20200317, end: 20200522
  14. PENTACARINAT [Concomitant]
     Active Substance: PENTAMIDINE ISETHIONATE
     Indication: Product used for unknown indication
     Dosage: 300 MG, QMO
     Route: 065
     Dates: start: 202007
  15. ZOVIRAX [Concomitant]
     Active Substance: ACYCLOVIR
     Indication: Prophylaxis
     Dosage: 600 MG, QD (200 MG, 3X/DAY)
     Route: 048
     Dates: start: 201912
  16. ESOMEPRAZOLE [Concomitant]
     Active Substance: ESOMEPRAZOLE
     Indication: Product used for unknown indication
     Dosage: 20 MG, QD
     Route: 048
     Dates: start: 201912

REACTIONS (12)
  - Neutropenia [Recovered/Resolved]
  - Febrile bone marrow aplasia [Recovered/Resolved]
  - Optic neuritis [Unknown]
  - Monocyte count increased [Unknown]
  - Red blood cell count decreased [Unknown]
  - Lymphocyte count decreased [Unknown]
  - Haematocrit decreased [Unknown]
  - Gamma-glutamyltransferase increased [Unknown]
  - Aspartate aminotransferase increased [Unknown]
  - White blood cell count decreased [Unknown]
  - Haemoglobin decreased [Unknown]
  - Drug interaction [Unknown]

NARRATIVE: CASE EVENT DATE: 20200529
